FAERS Safety Report 17064931 (Version 1)
Quarter: 2019Q4

REPORT INFORMATION
  Report Type: Spontaneous
  Country: JP (occurrence: JP)
  Receive Date: 20191122
  Receipt Date: 20191122
  Transmission Date: 20200122
  Serious: Yes (Hospitalization)
  Sender: FDA-Public Use
  Company Number: JP-CMP PHARMA-2019CMP00034

PATIENT
  Age: 80 Year
  Sex: Female
  Weight: 34 kg

DRUGS (13)
  1. ESOMEPRAZOLE MAGNESIUM HYDRATE [Concomitant]
     Active Substance: ESOMEPRAZOLE MAGNESIUM
     Dosage: 10 MG
     Route: 065
  2. SODIUM RISEDRONATE HYDRATE [Concomitant]
     Active Substance: RISEDRONATE SODIUM HEMI-PENTAHYDRATE
     Dosage: 75 MG, 1X/MONTH
     Route: 065
  3. PREDNISOLONE. [Concomitant]
     Active Substance: PREDNISOLONE
     Indication: ORGANISING PNEUMONIA
     Dosage: 17.5 MG
     Route: 065
  4. PREDNISOLONE. [Concomitant]
     Active Substance: PREDNISOLONE
     Dosage: 20 MG
     Route: 065
  5. PREDNISOLONE. [Concomitant]
     Active Substance: PREDNISOLONE
     Dosage: 10 MG
     Route: 065
  6. ASPIRIN. [Concomitant]
     Active Substance: ASPIRIN
     Dosage: 100 MG
     Route: 065
  7. DILTIAZEM HYDROCHLORIDE. [Concomitant]
     Active Substance: DILTIAZEM HYDROCHLORIDE
     Dosage: 100 MG
     Route: 065
  8. TACROLIMUS. [Concomitant]
     Active Substance: TACROLIMUS
     Dosage: 1.5 MG
     Route: 065
  9. ISONIAZID. [Suspect]
     Active Substance: ISONIAZID
     Indication: PROPHYLAXIS
     Dosage: 200 MG, 1X/DAY
     Route: 065
  10. TRIMETHOPRIM-SULFAMETHOXAZOLE [Concomitant]
     Active Substance: SULFAMETHOXAZOLE\TRIMETHOPRIM
     Dosage: 40-200 MG
     Route: 065
  11. PYRIDOXINE [Concomitant]
     Active Substance: PYRIDOXINE
     Dosage: 30 MG
     Route: 065
  12. PREDNISOLONE. [Concomitant]
     Active Substance: PREDNISOLONE
     Indication: RHEUMATOID ARTHRITIS
     Dosage: 45 MG
     Route: 065
  13. ALFACALCIDOL [Concomitant]
     Active Substance: ALFACALCIDOL
     Dosage: 0.25 ?G
     Route: 065

REACTIONS (3)
  - Neurotoxicity [Recovered/Resolved]
  - Psychotic disorder [Recovered/Resolved]
  - Mania [Recovered/Resolved]
